FAERS Safety Report 16813511 (Version 1)
Quarter: 2019Q3

REPORT INFORMATION
  Report Type: Spontaneous
  Country: US (occurrence: US)
  Receive Date: 20190917
  Receipt Date: 20190917
  Transmission Date: 20191005
  Serious: No
  Sender: FDA-Public Use
  Company Number: US-CELGENEUS-USA-20190902301

PATIENT
  Sex: Female
  Weight: 83 kg

DRUGS (1)
  1. LENALIDOMIDE [Suspect]
     Active Substance: LENALIDOMIDE
     Indication: B-CELL LYMPHOMA
     Dosage: 25 MILLIGRAM
     Route: 048
     Dates: start: 20190322

REACTIONS (2)
  - Hypoaesthesia oral [Unknown]
  - Lip discolouration [Unknown]

NARRATIVE: CASE EVENT DATE: 2019
